FAERS Safety Report 7207100-1 (Version None)
Quarter: 2011Q1

REPORT INFORMATION
  Report Type: 
  Country: None (occurrence: None)
  Receive Date: 20110103
  Receipt Date: 20101221
  Transmission Date: 20110831
  Serious: Yes (Hospitalization, Other)
  Sender: FDA-Public Use
  Company Number: US-ELI_LILLY_AND_COMPANY-US201012006710

PATIENT
  Sex: Male
  Weight: 136.51 kg

DRUGS (18)
  1. NORVASC [Concomitant]
     Indication: HYPERTENSION
     Dosage: 5 MG, DAILY (1/D)
     Route: 048
     Dates: end: 20101117
  2. HEPARIN SODIUM [Concomitant]
     Indication: ANTICOAGULANT THERAPY
     Dosage: 15000 IU, 3/D
     Route: 058
     Dates: start: 20101113, end: 20101115
  3. PRASUGREL HYDROCHLORIDE [Suspect]
     Dosage: 10 MG, DAILY (1/D)
     Route: 048
     Dates: start: 20101116
  4. VASOTEC [Concomitant]
     Indication: HYPERTENSION
     Dosage: UNK, DAILY (1/D)
     Route: 042
     Dates: start: 20101113, end: 20101113
  5. NOVOLIN N [Concomitant]
     Dosage: 20 IU, DAILY (1/D)
     Route: 058
     Dates: start: 20101112
  6. NOVOLIN R [Concomitant]
     Indication: TYPE 1 DIABETES MELLITUS
     Dosage: 4 IU, UNK
     Route: 058
     Dates: start: 20101115, end: 20101115
  7. COREG [Concomitant]
     Indication: HYPERTENSION
     Dosage: 12.5 MG, 2/D
     Route: 048
     Dates: start: 20101112
  8. NOVOLOG MIX 70/30 [Concomitant]
     Indication: TYPE 1 DIABETES MELLITUS
     Dosage: 10 IU, 2/D
     Route: 058
     Dates: start: 20101113
  9. NOVOLOG MIX 70/30 [Concomitant]
     Dosage: 5 IU, DAILY (1/D)
     Route: 058
     Dates: start: 20101112
  10. ASPIRIN [Concomitant]
     Dosage: 325 MG, DAILY (1/D)
     Route: 048
  11. NORVASC [Concomitant]
     Dosage: 10 MG, DAILY (1/D)
     Route: 048
     Dates: start: 20101118
  12. PROTONIX [Concomitant]
     Indication: PROPHYLAXIS
     Dosage: 40 MG, DAILY (1/D)
     Route: 048
  13. ASPIRIN [Concomitant]
     Dosage: 162 MG, DAILY (1/D)
     Route: 048
     Dates: end: 20101115
  14. PRASUGREL HYDROCHLORIDE [Suspect]
     Indication: ACUTE CORONARY SYNDROME
     Dosage: 60 MG, ONCE
     Dates: start: 20101115, end: 20101115
  15. ZOCOR [Concomitant]
     Dosage: 40 MG, DAILY (1/D)
     Route: 048
     Dates: start: 20101115
  16. NOVOLIN N [Concomitant]
     Indication: TYPE 1 DIABETES MELLITUS
     Dosage: 36 IU, DAILY (1/D)
     Route: 058
     Dates: start: 20101113
  17. ZOCOR [Concomitant]
     Indication: HYPERLIPIDAEMIA
     Dosage: 20 MG, DAILY (1/D)
     Route: 048
     Dates: end: 20101114
  18. NOVOLOG MIX 70/30 [Concomitant]
     Dosage: 21 IU, 3/D
     Route: 058
     Dates: start: 20101113

REACTIONS (1)
  - RENAL FAILURE [None]
